FAERS Safety Report 19402048 (Version 4)
Quarter: 2023Q4

REPORT INFORMATION
  Report Type: Spontaneous
  Country: US (occurrence: US)
  Receive Date: 20210610
  Receipt Date: 20231120
  Transmission Date: 20240110
  Serious: Yes (Other)
  Sender: FDA-Public Use
  Company Number: US-PFIZER INC-2021412723

PATIENT
  Age: 62 Year
  Sex: Female
  Weight: 61.23 kg

DRUGS (4)
  1. XELJANZ XR [Suspect]
     Active Substance: TOFACITINIB CITRATE
     Indication: Rheumatoid arthritis
     Dosage: 11 MG, 1X/DAY
  2. PREDNISONE [Concomitant]
     Active Substance: PREDNISONE
     Indication: Inflammation
     Dosage: 5 MG, ALTERNATE DAY
  3. ALBUTEROL SULFATE [Concomitant]
     Active Substance: ALBUTEROL SULFATE
     Dosage: UNK
  4. TYLENOL [Concomitant]
     Active Substance: ACETAMINOPHEN
     Indication: Arthritis
     Dosage: UNK
     Dates: start: 2021

REACTIONS (9)
  - Osteitis deformans [Unknown]
  - Swelling [Unknown]
  - Pain [Unknown]
  - Movement disorder [Unknown]
  - Gait disturbance [Unknown]
  - Blood pressure increased [Unknown]
  - Sinus disorder [Unknown]
  - Dysphonia [Unknown]
  - Asthma [Unknown]
